FAERS Safety Report 15278400 (Version 10)
Quarter: 2019Q2

REPORT INFORMATION
  Report Type: Spontaneous
  Country: NO (occurrence: NO)
  Receive Date: 20180814
  Receipt Date: 20190510
  Transmission Date: 20190711
  Serious: Yes (Life-Threatening, Hospitalization, Other)
  Sender: FDA-Public Use
  Company Number: PHHY2018NO025085

PATIENT
  Age: 18 Year
  Sex: Male

DRUGS (17)
  1. BLEOMYCIN SULFATE [Suspect]
     Active Substance: BLEOMYCIN SULFATE
     Indication: TESTIS CANCER
  2. CARBOPLATIN. [Suspect]
     Active Substance: CARBOPLATIN
     Indication: TESTIS CANCER
  3. LASTET [Suspect]
     Active Substance: ETOPOSIDE
     Indication: TESTIS CANCER
     Dosage: 2 COURSES OF UNDER BEP REGIMEN(MISUSE)
     Route: 065
  4. PREDNISOLONE. [Suspect]
     Active Substance: PREDNISOLONE
     Indication: PNEUMONITIS
     Dosage: HIGH-DOSE (MISUSE)
     Route: 065
  5. IMATINIB. [Suspect]
     Active Substance: IMATINIB MESYLATE
     Indication: PNEUMONITIS
     Dosage: 300 MG, 6 PER WEEK (MISUSE)
     Route: 045
  6. IMATINIB. [Suspect]
     Active Substance: IMATINIB MESYLATE
     Indication: PNEUMONITIS
     Dosage: 100 MG, QD (MISUSE)
     Route: 045
  7. IMATINIB. [Suspect]
     Active Substance: IMATINIB MESYLATE
     Indication: SYSTEMIC SCLERODERMA
  8. IFOSFAMIDE. [Suspect]
     Active Substance: IFOSFAMIDE
     Indication: TESTIS CANCER
  9. CARBOPLATIN. [Suspect]
     Active Substance: CARBOPLATIN
     Indication: TESTIS CANCER
     Dosage: TWO COURSES OF HIGH-DOSE CHEMOTHERAPY(MISUSE)
     Route: 065
  10. LASTET [Suspect]
     Active Substance: ETOPOSIDE
     Indication: TESTIS CANCER
     Dosage: TWO COURSES OF HIGH-DOSE
     Route: 065
  11. IMATINIB. [Suspect]
     Active Substance: IMATINIB MESYLATE
     Indication: ACUTE INTERSTITIAL PNEUMONITIS
  12. PACLITAXEL. [Suspect]
     Active Substance: PACLITAXEL
     Indication: TESTIS CANCER
     Dosage: THREE COURSES (MISUSE)
     Route: 065
  13. CISPLATIN. [Suspect]
     Active Substance: CISPLATIN
     Indication: TESTIS CANCER
     Dosage: 3 COURSES UNDER TIP (MISUSE)
     Route: 065
  14. PACLITAXEL. [Suspect]
     Active Substance: PACLITAXEL
     Indication: TESTIS CANCER
  15. BLEOMYCIN SULFATE [Suspect]
     Active Substance: BLEOMYCIN SULFATE
     Indication: TESTIS CANCER
     Dosage: 2 COURSES OF UNDER BEP REGIMEN (MISUSE)
     Route: 065
  16. CISPLATIN. [Suspect]
     Active Substance: CISPLATIN
     Indication: TESTIS CANCER
     Dosage: 2 COURSES OF UNDER BEP REGIMEN TWO COURSES OF HIGH-DOSE (MISUSE)
     Route: 065
  17. IFOSFAMIDE. [Suspect]
     Active Substance: IFOSFAMIDE
     Indication: TESTIS CANCER
     Dosage: THREE COURSES (MISUSE)
     Route: 065

REACTIONS (8)
  - Drug ineffective [Unknown]
  - Neutropenia [Recovered/Resolved]
  - Stenotrophomonas infection [Recovering/Resolving]
  - Pneumonitis [Recovering/Resolving]
  - Product use in unapproved indication [Unknown]
  - Therapeutic response unexpected [Unknown]
  - Off label use [Recovered/Resolved]
  - Therapeutic response decreased [Unknown]
